FAERS Safety Report 9983760 (Version 2)
Quarter: 2014Q1

REPORT INFORMATION
  Report Type: Spontaneous
  Country: US (occurrence: US)
  Receive Date: 20140307
  Receipt Date: 20140318
  Transmission Date: 20141002
  Serious: Yes (Hospitalization, Other)
  Sender: FDA-Public Use
  Company Number: US-BAXTER-2014BAX010966

PATIENT
  Age: 74 Year
  Sex: Female

DRUGS (1)
  1. DIANEAL LOW CALCIUM [Suspect]
     Indication: PERITONEAL DIALYSIS
     Route: 033

REACTIONS (5)
  - Gastritis [Recovering/Resolving]
  - Hepatic lesion [Recovering/Resolving]
  - Renal disorder [Recovering/Resolving]
  - Dehydration [Recovering/Resolving]
  - Peritoneal dialysis complication [Unknown]
